FAERS Safety Report 9178000 (Version 3)
Quarter: 2013Q2

REPORT INFORMATION
  Report Type: Spontaneous
  Country: DE (occurrence: DE)
  Receive Date: 20130321
  Receipt Date: 20130603
  Transmission Date: 20140414
  Serious: Yes (Death, Hospitalization, Other)
  Sender: FDA-Public Use
  Company Number: DE-ELI_LILLY_AND_COMPANY-DE201303003734

PATIENT
  Sex: Male

DRUGS (11)
  1. FORSTEO [Suspect]
     Dosage: UNK, QD
     Route: 058
     Dates: start: 20120529, end: 20121203
  2. VITAMIN D NOS [Concomitant]
  3. MELLERIL [Concomitant]
  4. VALSARTAN [Concomitant]
  5. IBUPROFEN [Concomitant]
  6. CAPTOHEXAL [Concomitant]
     Dosage: 50 MG, TID
  7. ASS TAD PROTECT [Concomitant]
  8. METOPROLOL [Concomitant]
     Dosage: 50 MG, QD
  9. SPIRIVA [Concomitant]
  10. AMLODIPIN                          /00972401/ [Concomitant]
  11. MOXONIDIN [Concomitant]
     Dosage: 0.4 MG, BID

REACTIONS (8)
  - Cerebrovascular accident [Fatal]
  - Loss of consciousness [Not Recovered/Not Resolved]
  - Brain stem infarction [Unknown]
  - Carotid artery stenosis [Unknown]
  - Cardiac failure [Unknown]
  - Cataract [Unknown]
  - Hypertension [Unknown]
  - Dyspnoea [Unknown]
